FAERS Safety Report 12897139 (Version 1)
Quarter: 2016Q4

REPORT INFORMATION
  Report Type: Spontaneous
  Country: US (occurrence: US)
  Receive Date: 20161031
  Receipt Date: 20161031
  Transmission Date: 20170207
  Serious: No
  Sender: FDA-Public Use
  Company Number: US-MISSION PHARMACAL COMPANY-1059053

PATIENT
  Age: 56 Year
  Sex: Female

DRUGS (1)
  1. THIOLA [Suspect]
     Active Substance: TIOPRONIN
     Route: 065
     Dates: start: 20160814

REACTIONS (9)
  - Calculus urethral [None]
  - Muscle spasms [Unknown]
  - Drug dose omission [Unknown]
  - Pain [Unknown]
  - Adhesion [None]
  - Therapeutic procedure [Unknown]
  - Drug ineffective [Unknown]
  - Therapy cessation [None]
  - Dyspepsia [Unknown]
